FAERS Safety Report 18261483 (Version 1)
Quarter: 2020Q3

REPORT INFORMATION
  Report Type: Spontaneous
  Country: JP (occurrence: JP)
  Receive Date: 20200914
  Receipt Date: 20200914
  Transmission Date: 20201103
  Serious: Yes (Other)
  Sender: FDA-Public Use
  Company Number: JP-PFIZER INC-2020352757

PATIENT
  Age: 25 Year
  Sex: Male

DRUGS (3)
  1. THROMBOMODULIN ALFA RECOMBINANT [Concomitant]
     Active Substance: THROMBOMODULIN ALFA
     Indication: PROPHYLAXIS
     Dosage: 380 IU/KG, FOR 7 DAYS
     Route: 042
  2. URSODEOXYCHOLIC ACID [Concomitant]
     Active Substance: URSODIOL
     Indication: PROPHYLAXIS
     Dosage: UNK UNTIL DAY 30
  3. GEMTUZUMAB OZOGAMICIN [Suspect]
     Active Substance: GEMTUZUMAB OZOGAMICIN
     Indication: ACUTE MYELOID LEUKAEMIA RECURRENT
     Dosage: 3 MG/M2, CYCLIC, FRACTIONATED ON DAY 1, 4, 7

REACTIONS (1)
  - Appendicitis [Recovered/Resolved]
